FAERS Safety Report 10182512 (Version 1)
Quarter: 2014Q2

REPORT INFORMATION
  Report Type: Spontaneous
  Country: US (occurrence: None)
  Receive Date: 20140516
  Receipt Date: 20140516
  Transmission Date: 20141212
  Serious: Yes (Hospitalization)
  Sender: FDA-Public Use
  Company Number: HA14-163-AE

PATIENT
  Age: 19 Year
  Sex: Female
  Weight: 54.43 kg

DRUGS (2)
  1. SMZ/TMP [Suspect]
     Indication: LOCALISED INFECTION
     Dosage: 1 TABLET
     Route: 048
     Dates: start: 20140424, end: 20140425
  2. SMZ/TMP [Suspect]
     Indication: SKIN INFECTION
     Dosage: 1 TABLET
     Route: 048
     Dates: start: 20140424, end: 20140425

REACTIONS (12)
  - Crying [None]
  - Hallucination, visual [None]
  - Headache [None]
  - Dizziness [None]
  - Fatigue [None]
  - Insomnia [None]
  - Tremor [None]
  - Convulsion [None]
  - Muscle twitching [None]
  - Feeling abnormal [None]
  - Panic reaction [None]
  - Confusional state [None]
